FAERS Safety Report 11075624 (Version 2)
Quarter: 2015Q3

REPORT INFORMATION
  Report Type: Spontaneous
  Country: CZ (occurrence: CZ)
  Receive Date: 20150429
  Receipt Date: 20150716
  Transmission Date: 20151125
  Serious: Yes (Hospitalization)
  Sender: FDA-Public Use
  Company Number: CZ-PFIZER INC-2015141364

PATIENT
  Age: 47 Year
  Sex: Male
  Weight: 75 kg

DRUGS (5)
  1. DALACIN [Suspect]
     Active Substance: CLINDAMYCIN\CLINDAMYCIN PHOSPHATE
     Indication: PULPITIS DENTAL
     Dosage: 300 MG, 3X/DAY (ONCE EVERY 8 HOURS)
     Route: 048
     Dates: start: 20150316, end: 20150322
  2. BRUFEN [Suspect]
     Active Substance: IBUPROFEN
     Dosage: UNK
  3. SERETIDE DISKUS 50/250 [Concomitant]
     Indication: ASTHMA
     Route: 055
  4. AUGMENTIN [Suspect]
     Active Substance: AMOXICILLIN\CLAVULANATE POTASSIUM
     Indication: PULPITIS DENTAL
     Dosage: 875 MG, UNK
     Route: 048
     Dates: start: 20150314, end: 20150315
  5. VENTOLIN INHALER N [Concomitant]
     Indication: ASTHMA
     Route: 055

REACTIONS (5)
  - Erythema multiforme [Recovered/Resolved]
  - Poor quality sleep [Recovered/Resolved]
  - Chills [Recovered/Resolved]
  - Nausea [Recovered/Resolved]
  - Rash [Recovering/Resolving]

NARRATIVE: CASE EVENT DATE: 20150322
